FAERS Safety Report 9420879 (Version 1)
Quarter: 2013Q3

REPORT INFORMATION
  Report Type: Spontaneous
  Country: US (occurrence: US)
  Receive Date: 20130725
  Receipt Date: 20130725
  Transmission Date: 20140515
  Serious: No
  Sender: FDA-Public Use
  Company Number: US-ABBOTT-13P-163-1098870-00

PATIENT
  Sex: Female
  Weight: 65.83 kg

DRUGS (2)
  1. SYNTHROID [Suspect]
     Indication: HYPOTHYROIDISM
     Dates: start: 1999, end: 2004
  2. LUNESTA [Concomitant]
     Indication: SLEEP DISORDER

REACTIONS (6)
  - Mental impairment [Recovered/Resolved]
  - Drug ineffective [Unknown]
  - Drug effect decreased [Not Recovered/Not Resolved]
  - Feeling cold [Recovered/Resolved]
  - Sluggishness [Recovered/Resolved]
  - Somnolence [Recovered/Resolved]
